FAERS Safety Report 8143106 (Version 6)
Quarter: 2012Q4

REPORT INFORMATION
  Report Type: 
  Country: US (occurrence: US)
  Receive Date: 20110919
  Receipt Date: 20121206
  Transmission Date: 20130627
  Serious: Yes (Hospitalization, Other)
  Sender: FDA-Public Use
  Company Number: US-009507513-1109USA01761

PATIENT

DRUGS (6)
  1. FOSAMAX [Suspect]
     Indication: OSTEOPOROSIS
     Dosage: 70 mg, UNK
     Route: 048
     Dates: start: 200212
  2. FOSAMAX [Suspect]
     Indication: PRODUCT USED FOR UNKNOWN INDICATION
     Route: 048
  3. FOSAMAX PLUS D [Suspect]
     Dosage: 70mg-5600
     Route: 048
  4. LOMOTIL [Concomitant]
     Indication: DIARRHOEA
  5. FORTEO [Concomitant]
     Indication: OSTEOPOROSIS
  6. EVISTA [Concomitant]
     Indication: OSTEOPOROSIS
     Dosage: 60 mg, UNK

REACTIONS (84)
  - Malignant melanoma [Unknown]
  - Abdominal hernia [Unknown]
  - Abdominal hernia [Unknown]
  - Hernia [Unknown]
  - Abdominal hernia [Unknown]
  - Device failure [Unknown]
  - Gastrointestinal surgery [Unknown]
  - Nasal septum deviation [Unknown]
  - Elbow operation [Unknown]
  - Renal failure [Unknown]
  - Renal failure chronic [Not Recovered/Not Resolved]
  - Intestinal adhesion lysis [Unknown]
  - Inguinal hernia [Unknown]
  - Open reduction of fracture [Unknown]
  - Open reduction of fracture [Unknown]
  - Open reduction of fracture [Unknown]
  - Abdominal hernia repair [Unknown]
  - Hernia obstructive [Unknown]
  - Suture rupture [Unknown]
  - Femur fracture [Unknown]
  - Femur fracture [Unknown]
  - Femur fracture [Recovered/Resolved]
  - Femur fracture [Unknown]
  - Low turnover osteopathy [Unknown]
  - Tooth disorder [Unknown]
  - Tooth disorder [Unknown]
  - Impaired healing [Unknown]
  - Sinusitis [Unknown]
  - Biopsy breast [Unknown]
  - Cough [Unknown]
  - Incision site haemorrhage [Unknown]
  - Chills [Unknown]
  - Decreased appetite [Unknown]
  - Abdominal hernia [Unknown]
  - Scoliosis [Unknown]
  - Spinal osteoarthritis [Unknown]
  - Bursitis [Unknown]
  - Gait disturbance [Unknown]
  - Bursitis [Unknown]
  - Hiatus hernia [Unknown]
  - Intestinal stenosis [Unknown]
  - Gastritis erosive [Unknown]
  - Body height decreased [Unknown]
  - Osteoarthritis [Unknown]
  - White blood cell count increased [Unknown]
  - Fractured sacrum [Unknown]
  - Vaginal prolapse [Unknown]
  - Atrophic vulvovaginitis [Unknown]
  - Limb injury [Unknown]
  - Angiomyolipoma [Not Recovered/Not Resolved]
  - Abdominal hernia [Unknown]
  - Vitamin D deficiency [Unknown]
  - Hypercalcaemia [Unknown]
  - Vulvovaginal burning sensation [Unknown]
  - Nephrolithiasis [Unknown]
  - Upper-airway cough syndrome [Unknown]
  - Gastroenteritis [Unknown]
  - Drug interaction [Unknown]
  - Haemorrhoids [Unknown]
  - Colitis [Not Recovered/Not Resolved]
  - Dehydration [Unknown]
  - Blood parathyroid hormone abnormal [Unknown]
  - Vulvovaginal dryness [Unknown]
  - Blood creatinine increased [Unknown]
  - Osteoarthritis [Unknown]
  - Skeletal injury [Unknown]
  - Hyperthyroidism [Unknown]
  - Post procedural infection [Unknown]
  - Enchondroma [Unknown]
  - Insomnia [Unknown]
  - Bursitis [Unknown]
  - Ligament sprain [Unknown]
  - Abdominal pain [Unknown]
  - Dysphagia [Unknown]
  - Back pain [Unknown]
  - Gastritis [Unknown]
  - Muscle spasms [Unknown]
  - Gastritis [Unknown]
  - Nausea [Unknown]
  - Vomiting [Unknown]
  - Back pain [Unknown]
  - Abdominal pain lower [Unknown]
  - Pain in extremity [Unknown]
  - Drug ineffective [Unknown]
